FAERS Safety Report 8164693-8 (Version None)
Quarter: 2012Q1

REPORT INFORMATION
  Report Type: 
  Country: None (occurrence: None)
  Receive Date: 20120227
  Receipt Date: 20120216
  Transmission Date: 20120608
  Serious: Yes (Hospitalization)
  Sender: FDA-Public Use
  Company Number: US-BIOGENIDEC-2011BI030844

PATIENT
  Age: 68 Year
  Sex: Male

DRUGS (2)
  1. TYSABRI [Suspect]
     Indication: MULTIPLE SCLEROSIS
     Route: 042
     Dates: start: 20090904
  2. MEDICATION (NOS) [Concomitant]
     Route: 048

REACTIONS (4)
  - DEVICE MALFUNCTION [None]
  - PNEUMONIA ASPIRATION [None]
  - INFECTION [None]
  - FALL [None]
